FAERS Safety Report 15113973 (Version 9)
Quarter: 2021Q1

REPORT INFORMATION
  Report Type: Report from Study
  Country: JP (occurrence: JP)
  Receive Date: 20180706
  Receipt Date: 20210215
  Transmission Date: 20210419
  Serious: Yes (Hospitalization, Other)
  Sender: FDA-Public Use
  Company Number: JP-009507513-1807JPN000117J

PATIENT
  Age: 62 Year
  Sex: Male
  Weight: 63 kg

DRUGS (9)
  1. KEYTRUDA [Suspect]
     Active Substance: PEMBROLIZUMAB
     Dosage: 200 MILLIGRAM, Q3W
     Route: 041
     Dates: start: 20180703
  2. CRESTOR [Concomitant]
     Active Substance: ROSUVASTATIN CALCIUM
     Indication: TRANSITIONAL CELL CARCINOMA
     Dosage: 5 MILLIGRAM, QD
     Route: 048
     Dates: end: 20180604
  3. NEXIUM [Concomitant]
     Active Substance: ESOMEPRAZOLE MAGNESIUM
     Indication: TRANSITIONAL CELL CARCINOMA
     Dosage: UNK
     Route: 048
  4. OLMESARTAN MEDOXOMIL. [Concomitant]
     Active Substance: OLMESARTAN MEDOXOMIL
     Indication: TRANSITIONAL CELL CARCINOMA
     Dosage: UNK
     Route: 048
  5. MAGNESIUM OXIDE. [Concomitant]
     Active Substance: MAGNESIUM OXIDE
     Indication: TRANSITIONAL CELL CARCINOMA
     Dosage: UNK
     Route: 048
  6. BROTIZOLAM [Concomitant]
     Active Substance: BROTIZOLAM
     Indication: TRANSITIONAL CELL CARCINOMA
     Dosage: UNK
     Route: 048
  7. KEYTRUDA [Suspect]
     Active Substance: PEMBROLIZUMAB
     Indication: TRANSITIONAL CELL CARCINOMA
     Dosage: 200 MILLIGRAM, Q3W
     Route: 041
     Dates: start: 20180227, end: 20180501
  8. CARVEDILOL. [Concomitant]
     Active Substance: CARVEDILOL
     Indication: TRANSITIONAL CELL CARCINOMA
     Dosage: UNK
     Route: 048
  9. BAYASPIRIN [Concomitant]
     Active Substance: ASPIRIN
     Indication: TRANSITIONAL CELL CARCINOMA
     Dosage: UNK
     Route: 048

REACTIONS (22)
  - Pruritus [Recovering/Resolving]
  - Myalgia [Recovered/Resolved]
  - Rash [Recovered/Resolved]
  - Decreased appetite [Recovered/Resolved]
  - Malaise [Recovered/Resolved]
  - Taste disorder [Recovered/Resolved]
  - Secondary adrenocortical insufficiency [Recovered/Resolved]
  - Adrenal insufficiency [Not Recovered/Not Resolved]
  - Physical deconditioning [Unknown]
  - Blood corticotrophin decreased [Recovered/Resolved]
  - Myasthenia gravis [Unknown]
  - Diabetes mellitus [Unknown]
  - Vomiting [Recovered/Resolved]
  - Myositis [Unknown]
  - Hypophysitis [Unknown]
  - Alopecia [Recovered/Resolved]
  - Arthralgia [Recovered/Resolved]
  - Nausea [Recovered/Resolved]
  - Constipation [Recovered/Resolved]
  - Hypercalcaemia [Recovered/Resolved]
  - Hyperthyroidism [Not Recovered/Not Resolved]
  - Blood uric acid increased [Unknown]

NARRATIVE: CASE EVENT DATE: 20180410
